FAERS Safety Report 14938902 (Version 2)
Quarter: 2018Q3

REPORT INFORMATION
  Report Type: Report from Study
  Country: US (occurrence: US)
  Receive Date: 20180525
  Receipt Date: 20180703
  Transmission Date: 20181010
  Serious: Yes (Other)
  Sender: FDA-Public Use
  Company Number: PHEH2018US019697

PATIENT
  Sex: Female

DRUGS (1)
  1. COSENTYX [Suspect]
     Active Substance: SECUKINUMAB
     Indication: PSORIASIS
     Dosage: 300 MG, QMO
     Route: 058
     Dates: start: 20180227

REACTIONS (9)
  - Abdominal pain upper [Unknown]
  - Gait disturbance [Unknown]
  - Psoriasis [Unknown]
  - Dry skin [Unknown]
  - Flatulence [Unknown]
  - Skin fissures [Unknown]
  - Mobility decreased [Unknown]
  - Fungal infection [Unknown]
  - Pain [Unknown]
